FAERS Safety Report 12855667 (Version 3)
Quarter: 2016Q4

REPORT INFORMATION
  Report Type: Report from Study
  Country: CN (occurrence: CN)
  Receive Date: 20161017
  Receipt Date: 20161228
  Transmission Date: 20170207
  Serious: Yes (Other)
  Sender: FDA-Public Use
  Company Number: CN-ROCHE-1679802

PATIENT
  Age: 63 Year
  Sex: Male
  Weight: 58 kg

DRUGS (1)
  1. AVASTIN [Suspect]
     Active Substance: BEVACIZUMAB
     Indication: RECTAL CANCER
     Route: 041
     Dates: start: 20140715

REACTIONS (8)
  - Abdominal pain [Recovering/Resolving]
  - Blood creatinine increased [Unknown]
  - Renal impairment [Unknown]
  - Hepatic function abnormal [Unknown]
  - Protein urine present [Unknown]
  - General physical health deterioration [Unknown]
  - Renal function test abnormal [Unknown]
  - Chronic kidney disease [Unknown]

NARRATIVE: CASE EVENT DATE: 201510
